FAERS Safety Report 20718969 (Version 1)
Quarter: 2022Q2

REPORT INFORMATION
  Report Type: Report from Study
  Country: US (occurrence: US)
  Receive Date: 20220418
  Receipt Date: 20220418
  Transmission Date: 20220721
  Serious: Yes (Other)
  Sender: FDA-Public Use
  Company Number: US-ALLERGAN-2212151US

PATIENT

DRUGS (1)
  1. THYROID [Suspect]
     Active Substance: LEVOTHYROXINE\LIOTHYRONINE
     Indication: Product used for unknown indication
     Dosage: 120 MG, QD

REACTIONS (5)
  - Fall [Recovered/Resolved]
  - Injury [Unknown]
  - Balance disorder [Unknown]
  - Hypertension [Unknown]
  - Depression [Unknown]
